FAERS Safety Report 4570704-9 (Version None)
Quarter: 2005Q1

REPORT INFORMATION
  Report Type: 
  Country: None (occurrence: None)
  Receive Date: 20050131
  Receipt Date: 20050120
  Transmission Date: 20050727
  Serious: Yes (Hospitalization)
  Sender: FDA-Public Use
  Company Number: US-2004-035800

PATIENT
  Age: 57 Year
  Sex: Female
  Weight: 81.6 kg

DRUGS (9)
  1. BETASERON [Suspect]
     Indication: MULTIPLE SCLEROSIS
     Dosage: 8 MIU, EVERY 2D, SUBCUTANEOUS
     Route: 058
     Dates: start: 20020701, end: 20041130
  2. BETASERON [Suspect]
     Indication: MULTIPLE SCLEROSIS
     Dosage: 8 MIU, EVERY 2D, SUBCUTANEOUS
     Route: 058
     Dates: start: 20041203
  3. PREMARIN [Concomitant]
  4. MAXZIDE [Concomitant]
  5. ACETYLSALICYLIC ACID SRT [Concomitant]
  6. ATENOLOL [Concomitant]
  7. ZOCOR [Concomitant]
  8. ALLEGRA [Concomitant]
  9. TYLENOL [Concomitant]

REACTIONS (3)
  - FATIGUE [None]
  - HAEMOPTYSIS [None]
  - TONSIL CANCER [None]
